FAERS Safety Report 7094936-3 (Version None)
Quarter: 2010Q4

REPORT INFORMATION
  Report Type: 
  Country: None (occurrence: None)
  Receive Date: 20101111
  Receipt Date: 20101102
  Transmission Date: 20110411
  Serious: No
  Sender: FDA-Public Use
  Company Number: US-BIOGENIDEC-2010BI038529

PATIENT
  Sex: Female

DRUGS (3)
  1. TYSABRI [Suspect]
     Indication: MULTIPLE SCLEROSIS
     Route: 042
     Dates: start: 20050114, end: 20050201
  2. TYSABRI [Suspect]
     Route: 042
     Dates: start: 20061117, end: 20080701
  3. TYSABRI [Suspect]
     Route: 042
     Dates: start: 20100909

REACTIONS (1)
  - OSTEOPENIA [None]
